FAERS Safety Report 6942120-3 (Version None)
Quarter: 2010Q3

REPORT INFORMATION
  Report Type: 
  Country: None (occurrence: None)
  Receive Date: 20100826
  Receipt Date: 20100817
  Transmission Date: 20110219
  Serious: Yes (Disabling)
  Sender: FDA-Public Use
  Company Number: FR-ASTRAZENECA-2010SE38564

PATIENT
  Age: 27639 Day
  Sex: Male

DRUGS (4)
  1. XYLOCAINE [Suspect]
     Indication: BACK PAIN
     Route: 058
     Dates: start: 20070305, end: 20070305
  2. ALTIM [Suspect]
     Indication: BACK PAIN
     Route: 008
     Dates: start: 20070305, end: 20070305
  3. LOMERON [Suspect]
     Indication: BACK PAIN
     Dosage: 250 MG IODINE/ML, 4 ML ONCE
     Route: 008
     Dates: start: 20070305, end: 20070305
  4. ARIXTRA [Concomitant]
     Indication: THROMBOSIS PROPHYLAXIS
     Route: 058
     Dates: start: 20070227, end: 20070315

REACTIONS (1)
  - CAUDA EQUINA SYNDROME [None]
